FAERS Safety Report 18856124 (Version 1)
Quarter: 2021Q1

REPORT INFORMATION
  Report Type: Report from Study
  Country: ZA (occurrence: ZA)
  Receive Date: 20210206
  Receipt Date: 20210206
  Transmission Date: 20210420
  Serious: Yes (Death, Hospitalization)
  Sender: FDA-Public Use
  Company Number: ZA-AMGEN LTD-ZAFSL2021016996

PATIENT
  Age: 39 Year
  Sex: Male

DRUGS (1)
  1. ARANESP [Suspect]
     Active Substance: DARBEPOETIN ALFA
     Indication: CHRONIC KIDNEY DISEASE
     Dosage: 40 MICROGRAM, QMO
     Route: 058
     Dates: start: 20190819, end: 20210201

REACTIONS (2)
  - Disease complication [Fatal]
  - COVID-19 [Fatal]

NARRATIVE: CASE EVENT DATE: 20210201
